FAERS Safety Report 6393402-8 (Version None)
Quarter: 2009Q4

REPORT INFORMATION
  Report Type: 
  Country: None (occurrence: None)
  Receive Date: 20091008
  Receipt Date: 20090924
  Transmission Date: 20100525
  Serious: Yes (Hospitalization)
  Sender: FDA-Public Use
  Company Number: CN-PFIZER INC-2009256105

PATIENT
  Age: 28 Year

DRUGS (1)
  1. SOLU-MEDROL [Suspect]
     Indication: DERMATITIS ALLERGIC
     Dosage: 40 MG, 1X/DAY
     Route: 042
     Dates: start: 20090724, end: 20090724

REACTIONS (1)
  - HYPOKALAEMIA [None]
